FAERS Safety Report 5127352-1 (Version None)
Quarter: 2006Q4

REPORT INFORMATION
  Report Type: 
  Country: None (occurrence: None)
  Receive Date: 20061010
  Receipt Date: 20060922
  Transmission Date: 20070319
  Serious: Yes (Death)
  Sender: FDA-Public Use
  Company Number: S06-FRA-03987-01

PATIENT
  Age: 41 Year
  Sex: Male

DRUGS (2)
  1. SEROPLEX (ESCITALOPRAM) [Suspect]
     Indication: MAJOR DEPRESSION
     Dosage: 10 MG QD PO
     Route: 048
     Dates: start: 20060913
  2. PRAZEPAM [Suspect]
     Indication: MAJOR DEPRESSION
     Dates: start: 20060913

REACTIONS (6)
  - ASTHENIA [None]
  - COMPLETED SUICIDE [None]
  - DELIRIUM [None]
  - HOMICIDE [None]
  - SLEEP DISORDER [None]
  - WEIGHT DECREASED [None]
